FAERS Safety Report 14655569 (Version 1)
Quarter: 2018Q1

REPORT INFORMATION
  Report Type: Spontaneous
  Country: DE (occurrence: DE)
  Receive Date: 20180319
  Receipt Date: 20180319
  Transmission Date: 20180509
  Serious: Yes (Hospitalization)
  Sender: FDA-Public Use
  Company Number: DE-TEVA-2018-DE-869283

PATIENT
  Age: 16 Year
  Sex: Female
  Weight: 53 kg

DRUGS (2)
  1. FLUOXETIN [Concomitant]
     Active Substance: FLUOXETINE HYDROCHLORIDE
     Indication: DEPRESSION
     Dosage: 20 MILLIGRAM DAILY;
     Route: 048
  2. QUETIAPIN [Suspect]
     Active Substance: QUETIAPINE
     Indication: DEPRESSION
     Dosage: 20 MILLIGRAM DAILY;
     Route: 048

REACTIONS (3)
  - Dizziness [Recovered/Resolved]
  - Vision blurred [Recovered/Resolved]
  - Nausea [Recovered/Resolved]
